FAERS Safety Report 8252174-2 (Version None)
Quarter: 2012Q2

REPORT INFORMATION
  Report Type: 
  Country: None (occurrence: None)
  Receive Date: 20120402
  Receipt Date: 20120323
  Transmission Date: 20120825
  Serious: Yes (Hospitalization)
  Sender: FDA-Public Use
  Company Number: CA-ELI_LILLY_AND_COMPANY-CA201203001764

PATIENT
  Age: 86 Year
  Sex: Female

DRUGS (7)
  1. TRIDURAL [Concomitant]
  2. EXTRA STRENGTH TYLENOL [Concomitant]
  3. SYNTHROID [Concomitant]
  4. DILANTIN [Concomitant]
  5. FORTEO [Suspect]
     Dosage: 20 UG, QD
     Route: 058
     Dates: start: 20120212
  6. FORTEO [Suspect]
     Indication: OSTEOPOROSIS
     Dosage: 20 UG, QD
     Route: 058
     Dates: end: 20120205
  7. CALCIUM CARBONATE [Concomitant]

REACTIONS (3)
  - COMA [None]
  - CONVULSION [None]
  - ANTICONVULSANT DRUG LEVEL INCREASED [None]
